FAERS Safety Report 23522001 (Version 2)
Quarter: 2024Q1

REPORT INFORMATION
  Report Type: Spontaneous
  Country: AU (occurrence: AU)
  Receive Date: 20240214
  Receipt Date: 20240219
  Transmission Date: 20240410
  Serious: Yes (Hospitalization)
  Sender: FDA-Public Use
  Company Number: AU-MYLANLABS-2024M1013597

PATIENT
  Age: 27 Year
  Sex: Male

DRUGS (1)
  1. CLOZARIL [Suspect]
     Active Substance: CLOZAPINE
     Indication: Schizophrenia
     Dosage: 100 MILLIGRAM
     Route: 048
     Dates: start: 20171030, end: 20240202

REACTIONS (2)
  - Mental impairment [Unknown]
  - Therapy cessation [Unknown]

NARRATIVE: CASE EVENT DATE: 20240202
